FAERS Safety Report 18917739 (Version 7)
Quarter: 2023Q4

REPORT INFORMATION
  Report Type: Spontaneous
  Country: US (occurrence: US)
  Receive Date: 20210219
  Receipt Date: 20231218
  Transmission Date: 20240110
  Serious: Yes (Other)
  Sender: FDA-Public Use
  Company Number: US-PFIZER INC-2021147064

PATIENT
  Age: 82 Year
  Sex: Female

DRUGS (11)
  1. XELJANZ XR [Suspect]
     Active Substance: TOFACITINIB CITRATE
     Dosage: 11 MG, 1X/DAY
  2. LEVOTHYROXINE [Concomitant]
     Active Substance: LEVOTHYROXINE
     Dosage: UNK
  3. SERTRALINE [Concomitant]
     Active Substance: SERTRALINE HYDROCHLORIDE
     Dosage: UNK
  4. FERROUS SULFATE [Concomitant]
     Active Substance: FERROUS SULFATE
     Dosage: UNK
  5. BIFIDOBACTERIUM SPP.\LACTOBACILLUS ACIDOPHILUS [Concomitant]
     Active Substance: BIFIDOBACTERIUM SPP.\LACTOBACILLUS ACIDOPHILUS
     Dosage: UNK
  6. LASIX [Concomitant]
     Active Substance: FUROSEMIDE
     Dosage: UNK
  7. SPIRONOLACTONE [Concomitant]
     Active Substance: SPIRONOLACTONE
     Dosage: UNK
  8. HYDROCHLOROTHIAZIDE [Concomitant]
     Active Substance: HYDROCHLOROTHIAZIDE
     Dosage: UNK
  9. MOBIC [Concomitant]
     Active Substance: MELOXICAM
     Dosage: UNK
  10. DITROPAN [Concomitant]
     Active Substance: OXYBUTYNIN CHLORIDE
     Dosage: UNK
  11. PRAVACHOL [Concomitant]
     Active Substance: PRAVASTATIN SODIUM
     Dosage: UNK

REACTIONS (11)
  - Monoplegia [Unknown]
  - Laryngitis [Unknown]
  - Aphonia [Not Recovered/Not Resolved]
  - Muscle disorder [Not Recovered/Not Resolved]
  - Memory impairment [Unknown]
  - Peripheral swelling [Unknown]
  - Hypertonic bladder [Unknown]
  - Confusional state [Unknown]
  - Dyspnoea [Unknown]
  - Urine output increased [Unknown]
  - Respiratory disorder [Unknown]

NARRATIVE: CASE EVENT DATE: 20230101
